FAERS Safety Report 5822342-5 (Version None)
Quarter: 2008Q3

REPORT INFORMATION
  Report Type: 
  Country: None (occurrence: None)
  Receive Date: 20080722
  Receipt Date: 20080619
  Transmission Date: 20090109
  Serious: Yes (Disabling)
  Sender: FDA-Public Use
  Company Number: 2008GR_BP0362

PATIENT
  Age: 57 Year

DRUGS (1)
  1. TERBINAFINE HYDROCHLORIDE [Suspect]
     Indication: ONYCHOMYCOSIS
     Dosage: (250 MG) ORAL
     Route: 048
     Dates: start: 20070910, end: 20080501

REACTIONS (1)
  - COLITIS MICROSCOPIC [None]
